FAERS Safety Report 10080256 (Version 1)
Quarter: 2014Q2

REPORT INFORMATION
  Report Type: Spontaneous
  Country: DE (occurrence: DE)
  Receive Date: 20140415
  Receipt Date: 20140415
  Transmission Date: 20141212
  Serious: Yes (Other)
  Sender: FDA-Public Use
  Company Number: DE-PFIZER INC-2014100446

PATIENT
  Sex: Female

DRUGS (1)
  1. CLIMOPAX [Suspect]
     Dosage: 1.25 MG, UNK

REACTIONS (3)
  - Lip and/or oral cavity cancer [Unknown]
  - Dysphagia [Unknown]
  - Off label use [Unknown]
